FAERS Safety Report 8569732 (Version 2)
Quarter: 2013Q3

REPORT INFORMATION
  Report Type: Spontaneous
  Country: US (occurrence: US)
  Receive Date: 20120518
  Receipt Date: 20130917
  Transmission Date: 20140515
  Serious: Yes (Hospitalization, Other)
  Sender: FDA-Public Use
  Company Number: US-ASTRAZENECA-2012SE30283

PATIENT
  Age: 42 Year
  Sex: Female
  Weight: 49.9 kg

DRUGS (16)
  1. SEROQUEL XR [Suspect]
     Indication: BIPOLAR DISORDER
     Dosage: SPLITS 50 MG INTO HALF
     Route: 048
  2. SEROQUEL XR [Suspect]
     Indication: ANXIETY
     Dosage: SPLITS 50 MG INTO HALF
     Route: 048
  3. SEROQUEL XR [Suspect]
     Indication: DEPRESSION
     Dosage: SPLITS 50 MG INTO HALF
     Route: 048
  4. SEROQUEL XR [Suspect]
     Indication: BIPOLAR DISORDER
     Route: 048
  5. SEROQUEL XR [Suspect]
     Indication: ANXIETY
     Route: 048
  6. SEROQUEL XR [Suspect]
     Indication: DEPRESSION
     Route: 048
  7. SEROQUEL XR [Suspect]
     Indication: BIPOLAR DISORDER
     Route: 048
  8. SEROQUEL XR [Suspect]
     Indication: ANXIETY
     Route: 048
  9. SEROQUEL XR [Suspect]
     Indication: DEPRESSION
     Route: 048
  10. SEROQUEL XR [Suspect]
     Indication: BIPOLAR DISORDER
     Route: 048
  11. SEROQUEL XR [Suspect]
     Indication: ANXIETY
     Route: 048
  12. SEROQUEL XR [Suspect]
     Indication: DEPRESSION
     Route: 048
  13. KLONOPIN [Concomitant]
     Indication: ANXIETY
     Dosage: AS NEEDED BID
  14. ADVAIR [Concomitant]
  15. PROAIR [Concomitant]
     Indication: PROPHYLAXIS
  16. DORYX [Concomitant]

REACTIONS (20)
  - Rib fracture [Unknown]
  - Visual impairment [Unknown]
  - Renal neoplasm [Unknown]
  - Nausea [Unknown]
  - Crying [Unknown]
  - Depression [Unknown]
  - Memory impairment [Unknown]
  - Anxiety [Unknown]
  - Activities of daily living impaired [Unknown]
  - Feeling abnormal [Unknown]
  - Insomnia [Unknown]
  - Mania [Unknown]
  - Malaise [Unknown]
  - Adverse event [Unknown]
  - Bipolar disorder [Unknown]
  - Fatigue [Unknown]
  - Tremor [Unknown]
  - Vomiting [Unknown]
  - Drug dose omission [Unknown]
  - Intentional drug misuse [Unknown]
